FAERS Safety Report 5028059-1 (Version None)
Quarter: 2006Q2

REPORT INFORMATION
  Report Type: 
  Country: None (occurrence: None)
  Receive Date: 20060612
  Receipt Date: 20060529
  Transmission Date: 20061013
  Serious: Yes (Hospitalization)
  Sender: FDA-Public Use
  Company Number: T200600602

PATIENT
  Age: 72 Year
  Sex: Female

DRUGS (1)
  1. OPTIRAY 160 [Suspect]
     Indication: ANGIOGRAM
     Dosage: 150  ML, SINGLE, INTRAVENOUS
     Route: 042
     Dates: start: 20060329, end: 20060329

REACTIONS (2)
  - HYPERSENSITIVITY [None]
  - RASH GENERALISED [None]
